FAERS Safety Report 5084291-2 (Version None)
Quarter: 2006Q3

REPORT INFORMATION
  Report Type: 
  Country: None (occurrence: None)
  Receive Date: 20060821
  Receipt Date: 20060811
  Transmission Date: 20061208
  Serious: Yes (Hospitalization, Disabling, Other)
  Sender: FDA-Public Use
  Company Number: FR-JNJFOC-20060200953

PATIENT
  Age: 36 Year
  Sex: Male
  Weight: 75 kg

DRUGS (16)
  1. REMICADE [Suspect]
     Route: 042
  2. REMICADE [Suspect]
     Route: 042
  3. REMICADE [Suspect]
     Route: 042
  4. REMICADE [Suspect]
     Route: 042
  5. REMICADE [Suspect]
     Indication: JUVENILE ARTHRITIS
     Route: 042
  6. CORTANCYL [Suspect]
     Indication: DRUG USE FOR UNKNOWN INDICATION
     Route: 048
  7. METHOTREXATE [Suspect]
     Indication: JUVENILE ARTHRITIS
     Route: 030
  8. LAROXYL [Concomitant]
     Route: 065
  9. STRONTIUM RANELATE [Concomitant]
     Route: 065
  10. CARDENSIEL [Concomitant]
     Route: 065
  11. NEXIUM [Concomitant]
     Route: 065
  12. BI-PROFENID [Concomitant]
     Route: 065
  13. ACTONEL [Concomitant]
     Route: 065
  14. OMEPRAZOLE [Concomitant]
     Route: 065
  15. IDEOS [Concomitant]
     Route: 065
  16. SPECIAFOLDINE [Concomitant]
     Route: 065

REACTIONS (3)
  - CHEST PAIN [None]
  - PERIPHERAL ISCHAEMIA [None]
  - PNEUMONIA STREPTOCOCCAL [None]
